FAERS Safety Report 4634448-7 (Version None)
Quarter: 2005Q2

REPORT INFORMATION
  Report Type: 
  Country: None (occurrence: None)
  Receive Date: 20050412
  Receipt Date: 20041217
  Transmission Date: 20051028
  Serious: Yes (Other)
  Sender: FDA-Public Use
  Company Number: 2004115203

PATIENT
  Sex: Female

DRUGS (3)
  1. VIRACEPT [Suspect]
     Indication: HIV TEST POSITIVE
     Dosage: 2500 MG , ORAL
     Route: 048
     Dates: start: 20041118, end: 20041130
  2. EFAVIRENZ (EFAVIRENZ) [Suspect]
     Indication: HIV TEST POSITIVE
     Dosage: ORAL
     Route: 048
     Dates: start: 20010101, end: 20041015
  3. LAMIVUDINE AND ZIDOVUDINE [Suspect]
     Indication: HIV TEST POSITIVE
     Dosage: ORAL
     Route: 048
     Dates: start: 20010101, end: 20041130

REACTIONS (5)
  - ABORTION SPONTANEOUS [None]
  - CHROMOSOME ANALYSIS ABNORMAL [None]
  - DRUG EXPOSURE DURING PREGNANCY [None]
  - PREMATURE RUPTURE OF MEMBRANES [None]
  - ULTRASOUND ANTENATAL SCREEN ABNORMAL [None]
